FAERS Safety Report 15839944 (Version 2)
Quarter: 2019Q1

REPORT INFORMATION
  Report Type: Report from Study
  Country: US (occurrence: US)
  Receive Date: 20190117
  Receipt Date: 20190315
  Transmission Date: 20190417
  Serious: Yes (Death)
  Sender: FDA-Public Use
  Company Number: US-ACTELION-A-US2018-176229

PATIENT
  Age: 89 Year
  Sex: Female

DRUGS (15)
  1. PRESERVISION [Concomitant]
     Active Substance: MINERALS\VITAMINS
     Dosage: 1 TABLET AM AND PM
     Dates: start: 2015
  2. OPSUMIT [Suspect]
     Active Substance: MACITENTAN
     Indication: PULMONARY ARTERIAL HYPERTENSION
     Dosage: 10 MG, QPM
     Route: 048
     Dates: start: 20180711
  3. OXYGEN. [Concomitant]
     Active Substance: OXYGEN
  4. LEVOTHYROXINE. [Concomitant]
     Active Substance: LEVOTHYROXINE
     Dosage: 25 MG, QD
     Dates: start: 2014
  5. FLUOXETINE [Concomitant]
     Active Substance: FLUOXETINE HYDROCHLORIDE
     Dosage: 10 MG AND 20 MG QD
  6. METOLAZONE. [Concomitant]
     Active Substance: METOLAZONE
     Dosage: FRIDAY 2.5 MG PRN
     Dates: start: 2018
  7. ATORVASTATIN [Concomitant]
     Active Substance: ATORVASTATIN
     Dosage: 10 MG, QD
  8. POTASSIUM [Concomitant]
     Active Substance: POTASSIUM
     Dosage: 20 MG, QD
  9. KEFLEX [Concomitant]
     Active Substance: CEPHALEXIN
     Dosage: 500 MG, TID
     Dates: start: 201711
  10. CULTURELLE [Concomitant]
     Active Substance: LACTOBACILLUS RHAMNOSUS
     Dosage: UNK, BID
  11. TORSEMIDE. [Concomitant]
     Active Substance: TORSEMIDE
     Dosage: 40 MG, QD
     Dates: start: 2018
  12. XARELTO [Concomitant]
     Active Substance: RIVAROXABAN
     Dosage: 150 MG, QD
     Dates: start: 201801
  13. BIOTENE NOS [Concomitant]
     Active Substance: CETYLPYRIDINIUM CHLORIDE OR SODIUM FLUORIDE OR SODIUM MONOFLUOROPHOSPHATE OR GLUCOSE OXIDASE\LACTOFERRIN\LACTOPEROXIDASE BOVINE\LYSOZYME
     Dosage: 5000 MG, QD
     Dates: start: 2018
  14. SPIRONOLACTONE. [Concomitant]
     Active Substance: SPIRONOLACTONE
     Dosage: M/W/F 25 MG PRN
     Dates: start: 2018
  15. NEXIUM [Concomitant]
     Active Substance: ESOMEPRAZOLE MAGNESIUM
     Dosage: 20 MG, BID
     Dates: start: 2015

REACTIONS (8)
  - Death [Fatal]
  - Dyspnoea [Recovering/Resolving]
  - Rhinorrhoea [Not Recovered/Not Resolved]
  - Nasal congestion [Unknown]
  - Fluid retention [Unknown]
  - Lung disorder [Not Recovered/Not Resolved]
  - Secretion discharge [Recovering/Resolving]
  - Nasal dryness [Not Recovered/Not Resolved]

NARRATIVE: CASE EVENT DATE: 201807
